FAERS Safety Report 6583088-1 (Version None)
Quarter: 2010Q1

REPORT INFORMATION
  Report Type: 
  Country: None (occurrence: None)
  Receive Date: 20100216
  Receipt Date: 20100205
  Transmission Date: 20100710
  Serious: Yes (Life-Threatening, Hospitalization, Other)
  Sender: FDA-Public Use
  Company Number: US-MERCK-1001USA00066

PATIENT
  Age: 50 Year
  Sex: Male
  Weight: 66 kg

DRUGS (12)
  1. FOSAMAX [Suspect]
     Indication: OSTEOPOROSIS
     Route: 048
     Dates: start: 20050625, end: 20091203
  2. KEPPRA [Concomitant]
     Indication: CONVULSION
     Route: 048
     Dates: start: 20071001
  3. LAMICTAL [Concomitant]
     Indication: CONVULSION
     Route: 048
     Dates: start: 20071001
  4. ZONEGRAN [Concomitant]
     Indication: CONVULSION
     Route: 048
     Dates: start: 20060814
  5. DEPAKOTE [Concomitant]
     Indication: CONVULSION
     Route: 048
  6. CELEXA [Concomitant]
     Indication: DEPRESSION
     Route: 048
     Dates: start: 20070706
  7. DOXYCYCLINE [Concomitant]
     Route: 065
  8. VITAMIN D (UNSPECIFIED) [Concomitant]
     Route: 048
  9. CALCIUM (UNSPECIFIED) [Concomitant]
     Route: 048
  10. LACTULOSE [Concomitant]
     Route: 065
  11. DILANTIN [Suspect]
     Route: 065
  12. TETRACYCLINE [Concomitant]
     Indication: ACNE
     Route: 048

REACTIONS (5)
  - ATAXIA [None]
  - CONVULSION [None]
  - INCORRECT DRUG DOSAGE FORM ADMINISTERED [None]
  - JAW FRACTURE [None]
  - OESOPHAGEAL ADENOCARCINOMA [None]
